FAERS Safety Report 7287261-9 (Version None)
Quarter: 2011Q1

REPORT INFORMATION
  Report Type: 
  Country: None (occurrence: None)
  Receive Date: 20110125
  Receipt Date: 20110110
  Transmission Date: 20110831
  Serious: Yes (Death)
  Sender: FDA-Public Use
  Company Number: 025523

PATIENT
  Age: 47 Year
  Sex: Female

DRUGS (5)
  1. BUPROPION [Suspect]
     Dosage: ORAL
     Route: 048
  2. ACE INHIBITOR NOS [Suspect]
     Dosage: ORAL
     Route: 048
  3. VENLAFAXINE [Suspect]
     Dosage: ORAL
     Route: 048
  4. VERAPAMIL [Suspect]
     Dosage: ORAL
     Route: 048
  5. ALPRAZOLAM [Suspect]
     Dosage: ORAL
     Route: 048

REACTIONS (1)
  - COMPLETED SUICIDE [None]
